FAERS Safety Report 4355000-7 (Version None)
Quarter: 2004Q2

REPORT INFORMATION
  Report Type: 
  Country: None (occurrence: None)
  Receive Date: 20040504
  Receipt Date: 20040421
  Transmission Date: 20050107
  Serious: Yes (Other)
  Sender: FDA-Public Use
  Company Number: 23784

PATIENT
  Age: 14 Year
  Sex: Female

DRUGS (2)
  1. MAXAIR [Suspect]
     Dosage: UNSPECIFIED (ON REQUEST)
     Route: 055
     Dates: start: 20000101
  2. SERETIDE (FLUTICASONE, SALMETEROL) [Concomitant]

REACTIONS (1)
  - FOREIGN BODY TRAUMA [None]
